FAERS Safety Report 17446469 (Version 3)
Quarter: 2020Q1

REPORT INFORMATION
  Report Type: Report from Study
  Country: US (occurrence: US)
  Receive Date: 20200221
  Receipt Date: 20200319
  Transmission Date: 20200409
  Serious: Yes (Death, Hospitalization, Other)
  Sender: FDA-Public Use
  Company Number: US-GILEAD-2020-0451842

PATIENT
  Age: 14 Year
  Sex: Male

DRUGS (8)
  1. AMBRISENTAN [Suspect]
     Active Substance: AMBRISENTAN
     Indication: ESSENTIAL HYPERTENSION
     Dosage: 10 MG, QD
     Route: 048
     Dates: start: 20180712
  2. SELEXIPAG [Concomitant]
     Active Substance: SELEXIPAG
  3. MILRINONE [Concomitant]
     Active Substance: MILRINONE
  4. ADCIRCA [Concomitant]
     Active Substance: TADALAFIL
  5. LASIX [Concomitant]
     Active Substance: FUROSEMIDE
  6. AMBRISENTAN [Suspect]
     Active Substance: AMBRISENTAN
     Indication: NON-COMPACTION CARDIOMYOPATHY
  7. ENALAPRIL [Concomitant]
     Active Substance: ENALAPRIL
  8. COREG [Concomitant]
     Active Substance: CARVEDILOL

REACTIONS (3)
  - Infection [Not Recovered/Not Resolved]
  - Cardiac disorder [Not Recovered/Not Resolved]
  - Death [Fatal]

NARRATIVE: CASE EVENT DATE: 20200226
